FAERS Safety Report 15361086 (Version 1)
Quarter: 2018Q3

REPORT INFORMATION
  Report Type: Spontaneous
  Country: US (occurrence: US)
  Receive Date: 20180907
  Receipt Date: 20180907
  Transmission Date: 20181010
  Serious: Yes (Disabling)
  Sender: FDA-Public Use
  Company Number: US-009507513-1808USA013043

PATIENT
  Sex: Male

DRUGS (3)
  1. SINEMET [Suspect]
     Active Substance: CARBIDOPA\LEVODOPA
     Dosage: 11 TABLETS DAILY
     Route: 048
     Dates: end: 20171006
  2. SINEMET [Suspect]
     Active Substance: CARBIDOPA\LEVODOPA
     Dosage: 9 TABLETS PER DAY
     Route: 048
  3. SINEMET [Suspect]
     Active Substance: CARBIDOPA\LEVODOPA
     Indication: PARKINSON^S DISEASE
     Dosage: 1 TABLET, THREE TIMES DAILY
     Route: 048
     Dates: start: 2011

REACTIONS (3)
  - Drug ineffective [Recovered/Resolved]
  - Dyskinesia [Recovered/Resolved]
  - Prescribed overdose [Unknown]
